FAERS Safety Report 12528359 (Version 1)
Quarter: 2016Q3

REPORT INFORMATION
  Report Type: Spontaneous
  Country: US (occurrence: US)
  Receive Date: 20160705
  Receipt Date: 20160705
  Transmission Date: 20161109
  Serious: Yes (Other)
  Sender: FDA-Public Use
  Company Number: US-FRI-1000085797

PATIENT

DRUGS (1)
  1. LINZESS [Suspect]
     Active Substance: LINACLOTIDE

REACTIONS (4)
  - Gastrointestinal carcinoma [Unknown]
  - Constipation [Unknown]
  - Abdominal hernia [Unknown]
  - Brain neoplasm [Unknown]
